FAERS Safety Report 23220895 (Version 1)
Quarter: 2023Q4

REPORT INFORMATION
  Report Type: Report from Study
  Country: US (occurrence: US)
  Receive Date: 20231123
  Receipt Date: 20231123
  Transmission Date: 20240110
  Serious: Yes (Other)
  Sender: FDA-Public Use
  Company Number: US-ABBVIE-5507655

PATIENT
  Sex: Female

DRUGS (3)
  1. RINVOQ [Suspect]
     Active Substance: UPADACITINIB
     Indication: Dermatitis atopic
     Dosage: RINVOQ ER?STRENGTH-15 MG?START DATE 2023
     Route: 048
  2. RINVOQ [Suspect]
     Active Substance: UPADACITINIB
     Indication: Dermatitis atopic
     Dosage: RINVOQ ER?STRENGTH-15 MG?END DATE 2023
     Route: 048
     Dates: start: 20230401
  3. RINVOQ [Suspect]
     Active Substance: UPADACITINIB
     Indication: Dermatitis atopic
     Dosage: RINVOQ ER?STRENGTH-15 MG?DRUG START AND END DATE 2023
     Route: 048

REACTIONS (5)
  - Ligament disorder [Unknown]
  - Dermatitis atopic [Recovered/Resolved]
  - Dermatitis atopic [Unknown]
  - Stress [Unknown]
  - Hyperhidrosis [Unknown]

NARRATIVE: CASE EVENT DATE: 20230101
